FAERS Safety Report 8018994-4 (Version None)
Quarter: 2012Q1

REPORT INFORMATION
  Report Type: 
  Country: None (occurrence: None)
  Receive Date: 20120103
  Receipt Date: 20111231
  Transmission Date: 20120608
  Serious: No
  Sender: FDA-Public Use
  Company Number: US-PFIZER INC-2011317553

PATIENT
  Sex: Female
  Weight: 81.633 kg

DRUGS (3)
  1. CHANTIX [Suspect]
     Indication: SMOKING CESSATION THERAPY
     Dosage: 0.5 MG, DAILY
     Dates: start: 20100322, end: 20100101
  2. CHANTIX [Suspect]
     Dosage: UNK
     Dates: start: 20110101, end: 20110101
  3. CHANTIX [Suspect]
     Dosage: 0.5 MG, DAILY
     Dates: start: 20110101, end: 20110101

REACTIONS (1)
  - RASH [None]
